FAERS Safety Report 9078830 (Version 1)
Quarter: 2013Q1

REPORT INFORMATION
  Report Type: Spontaneous
  Country: US (occurrence: US)
  Receive Date: 20130130
  Receipt Date: 20130130
  Transmission Date: 20140127
  Serious: No
  Sender: FDA-Public Use
  Company Number: US-009507513-1301USA013654

PATIENT
  Sex: Male

DRUGS (3)
  1. VICTRELIS [Suspect]
     Dosage: 4 DF, TID
     Dates: start: 201301
  2. PEGINTRON [Suspect]
     Dosage: 0.5 ML, QW
     Route: 058
     Dates: start: 201211
  3. REBETOL [Suspect]
     Dosage: 3 DF, BID
     Dates: start: 201211

REACTIONS (4)
  - Rash [Unknown]
  - Headache [Unknown]
  - Vomiting [Unknown]
  - Cough [Unknown]
